FAERS Safety Report 8024257-3 (Version None)
Quarter: 2012Q1

REPORT INFORMATION
  Report Type: 
  Country: None (occurrence: None)
  Receive Date: 20120103
  Receipt Date: 20111228
  Transmission Date: 20120608
  Serious: No
  Sender: FDA-Public Use
  Company Number: 2011-01339

PATIENT
  Sex: Male

DRUGS (1)
  1. ZICAM ULTRA COLD REMEDY RAPIDMELTS [Suspect]

REACTIONS (2)
  - AGEUSIA [None]
  - DRY MOUTH [None]
